FAERS Safety Report 21511609 (Version 1)
Quarter: 2022Q4

REPORT INFORMATION
  Report Type: Spontaneous
  Country: IR (occurrence: IR)
  Receive Date: 20221027
  Receipt Date: 20221027
  Transmission Date: 20230112
  Serious: Yes (Other)
  Sender: FDA-Public Use
  Company Number: IR-SUN PHARMACEUTICAL INDUSTRIES LTD-2022RR-360490

PATIENT
  Age: 54 Year
  Sex: Female

DRUGS (5)
  1. MEROPENEM [Suspect]
     Active Substance: MEROPENEM
     Indication: Sepsis
     Dosage: 1 GRAM TDS
     Route: 042
  2. CASPOFUNGIN [Suspect]
     Active Substance: CASPOFUNGIN
     Indication: Sepsis
     Dosage: 50 MILLIGRAM, DAILY
     Route: 065
  3. DEXAMETHASONE [Suspect]
     Active Substance: DEXAMETHASONE
     Indication: Sepsis
     Dosage: 8 MILLIGRAM TDS
     Route: 065
  4. REMDESIVIR [Suspect]
     Active Substance: REMDESIVIR
     Indication: Sepsis
     Dosage: 200 MILLIGRAM, DAILY
     Route: 042
  5. COLISTIN [Suspect]
     Active Substance: COLISTIN
     Indication: Sepsis
     Dosage: 4.5 MILLIGRAM
     Route: 042

REACTIONS (2)
  - Off label use [Unknown]
  - Immunosuppression [Unknown]
